FAERS Safety Report 4652753-5 (Version None)
Quarter: 2005Q2

REPORT INFORMATION
  Report Type: 
  Country: None (occurrence: None)
  Receive Date: 20050503
  Receipt Date: 20050309
  Transmission Date: 20051028
  Serious: Yes (Death)
  Sender: FDA-Public Use
  Company Number: 2005S1001108

PATIENT
  Age: 79 Year
  Sex: Female

DRUGS (1)
  1. CLOZAPINE [Suspect]
     Indication: PSYCHOTIC DISORDER
     Dosage: SEE IMAGE
     Route: 048
     Dates: start: 20030101, end: 20031001

REACTIONS (1)
  - DEATH [None]
